FAERS Safety Report 16528966 (Version 1)
Quarter: 2019Q3

REPORT INFORMATION
  Report Type: Spontaneous
  Country: IT (occurrence: IT)
  Receive Date: 20190703
  Receipt Date: 20190703
  Transmission Date: 20191004
  Serious: Yes (Hospitalization)
  Sender: FDA-Public Use
  Company Number: IT-ALLERGAN-1927091US

PATIENT
  Sex: Female

DRUGS (6)
  1. OZURDEX [Suspect]
     Active Substance: DEXAMETHASONE
     Indication: DIABETIC RETINAL OEDEMA
     Dosage: 0.7 MG, SINGLE
     Dates: start: 20190415, end: 20190415
  2. OZURDEX [Suspect]
     Active Substance: DEXAMETHASONE
     Dosage: 0.7 MG, SINGLE
     Route: 031
     Dates: start: 20170101, end: 20170101
  3. ZYLORIC [Concomitant]
     Active Substance: ALLOPURINOL
     Indication: HYPERURICAEMIA
     Route: 048
  4. EUTIROX 100 MICROGRAMMI COMPRESSE [Concomitant]
     Active Substance: LEVOTHYROXINE SODIUM
     Indication: THYROIDECTOMY
  5. COTAREG 160 MG/12,5 MG COMPRESSE RIVESTITE CON FILM [Concomitant]
     Indication: HYPERTENSIVE HEART DISEASE
     Route: 048
  6. REPAGLINIDE. [Concomitant]
     Active Substance: REPAGLINIDE
     Indication: DIABETES MELLITUS
     Route: 048

REACTIONS (1)
  - Angina pectoris [Recovering/Resolving]

NARRATIVE: CASE EVENT DATE: 20190204
